FAERS Safety Report 6974214-0 (Version None)
Quarter: 2010Q3

REPORT INFORMATION
  Report Type: 
  Country: None (occurrence: None)
  Receive Date: 20100909
  Receipt Date: 20080219
  Transmission Date: 20110219
  Serious: No
  Sender: FDA-Public Use
  Company Number: US-WYE-H02722608

PATIENT
  Age: 38 Year
  Sex: Male

DRUGS (2)
  1. PROTONIX [Suspect]
     Route: 048
     Dates: start: 20071101
  2. HYDROMORPHONE HCL [Concomitant]

REACTIONS (1)
  - DRUG SCREEN POSITIVE [None]
